FAERS Safety Report 6913830-9 (Version None)
Quarter: 2010Q3

REPORT INFORMATION
  Report Type: 
  Country: None (occurrence: None)
  Receive Date: 20100809
  Receipt Date: 20100730
  Transmission Date: 20110219
  Serious: Yes (Hospitalization)
  Sender: FDA-Public Use
  Company Number: MK-ROCHE-718702

PATIENT
  Sex: Male
  Weight: 73 kg

DRUGS (3)
  1. CAPECITABINE [Suspect]
     Indication: GASTRIC CANCER
     Dosage: REPORTED DOSE: 3000 MG.
     Route: 048
     Dates: start: 20090415, end: 20090813
  2. CISPLATIN [Concomitant]
     Indication: GASTRIC CANCER
     Dosage: REPORTED DOSE: 80 MG; DRUG REPORTED AS 'CIAPLATIL'
     Route: 042
     Dates: start: 20090414, end: 20090831
  3. EPIRUBICIN [Concomitant]
     Indication: GASTRIC CANCER
     Route: 042
     Dates: start: 20090414, end: 20090521

REACTIONS (3)
  - DIARRHOEA [None]
  - MUCOSAL INFLAMMATION [None]
  - PALMAR-PLANTAR ERYTHRODYSAESTHESIA SYNDROME [None]
